FAERS Safety Report 5587425-6 (Version None)
Quarter: 2007Q4

REPORT INFORMATION
  Report Type: 
  Country: None (occurrence: None)
  Receive Date: 20071205
  Receipt Date: 20070906
  Transmission Date: 20080405
  Serious: Yes (Life-Threatening, Other)
  Sender: FDA-Public Use
  Company Number: HQWYE059306SEP07

PATIENT
  Age: 69 Year
  Sex: Male
  Weight: 67.65 kg

DRUGS (2)
  1. EFFEXOR XR [Suspect]
     Indication: DEPRESSION
     Dosage: 75 MG 1X PER 1 DAY ; 37.5 MG 1X PER 1 DAY
     Dates: start: 20070816, end: 20070822
  2. EFFEXOR XR [Suspect]
     Indication: DEPRESSION
     Dosage: 75 MG 1X PER 1 DAY ; 37.5 MG 1X PER 1 DAY
     Dates: start: 20070823, end: 20070824

REACTIONS (1)
  - URINARY RETENTION [None]
